FAERS Safety Report 19257957 (Version 15)
Quarter: 2021Q4

REPORT INFORMATION
  Report Type: Report from Study
  Country: GB (occurrence: GB)
  Receive Date: 20210514
  Receipt Date: 20211020
  Transmission Date: 20220303
  Serious: Yes (Hospitalization, Other)
  Sender: FDA-Public Use
  Company Number: None

PATIENT
  Age: 65 Year
  Sex: Male
  Weight: 94 kg

DRUGS (13)
  1. FUROSEMIDE [Suspect]
     Active Substance: FUROSEMIDE
     Indication: Gastric cancer
     Dosage: DATE OF LAST DOSE: 06-MAR-2012
     Route: 048
     Dates: start: 20120124, end: 20120306
  2. CISPLATIN [Suspect]
     Active Substance: CISPLATIN
     Indication: Gastric cancer
     Dosage: DATE OF MOST RECENT ADMINISTRATION: 06-MAR-2012
     Route: 042
     Dates: start: 20120124
  3. EPIRUBICIN HYDROCHLORIDE [Suspect]
     Active Substance: EPIRUBICIN HYDROCHLORIDE
     Indication: Gastric cancer
     Dosage: DATE OF MOST RECENT ADMINISTRATION: 06-MAR-2012
     Route: 042
     Dates: start: 20120124, end: 20120306
  4. ONDANSETRON [Suspect]
     Active Substance: ONDANSETRON
     Indication: Product used for unknown indication
     Route: 065
  5. CAPECITABINE [Suspect]
     Active Substance: CAPECITABINE
     Indication: Gastric cancer
     Dosage: THERAPY END DATE:27-MAR-2012
     Route: 048
     Dates: start: 20120124
  6. ONDANSETRON [Suspect]
     Active Substance: ONDANSETRON
     Indication: Gastric cancer
     Dosage: DATE OF LAST DOSE: 09-MAR-2012
     Route: 048
     Dates: start: 20120124, end: 20120309
  7. XELODA [Suspect]
     Active Substance: CAPECITABINE
     Indication: Gastric cancer
     Dosage: DATE OF MOST RECENT ADMINISTRATION: 27-MAR-2012
     Route: 048
     Dates: start: 20120124, end: 20120327
  8. AVASTIN [Suspect]
     Active Substance: BEVACIZUMAB
     Indication: Gastric cancer
     Dosage: DATE OF MOST RECENT ADMINISTRATION: 06-MAR-2012
     Route: 042
     Dates: start: 20120124, end: 20120306
  9. DEXAMETHASONE [Suspect]
     Active Substance: DEXAMETHASONE
     Indication: Gastric cancer
     Dosage: THERAPY END DATE 09-MAR-2012
     Route: 048
     Dates: start: 20120124, end: 20120309
  10. EMEND [Suspect]
     Active Substance: APREPITANT
     Indication: Gastric cancer
     Dosage: DATE OF LAST DOSE: 06-MAR-2012
     Route: 048
     Dates: start: 20120124, end: 20210306
  11. SIMVASTATIN [Concomitant]
     Active Substance: SIMVASTATIN
     Indication: Product used for unknown indication
     Route: 048
     Dates: start: 200503
  12. LISINOPRIL [Concomitant]
     Active Substance: LISINOPRIL
     Indication: Product used for unknown indication
     Route: 065
     Dates: start: 200705
  13. BEVACIZUMAB [Suspect]
     Active Substance: BEVACIZUMAB
     Indication: Gastric cancer
     Dates: start: 20120124

REACTIONS (5)
  - Abdominal sepsis [Recovered/Resolved]
  - Off label use [Unknown]
  - Febrile neutropenia [Recovered/Resolved]
  - Vomiting [Recovered/Resolved]
  - Diarrhoea [Recovered/Resolved]

NARRATIVE: CASE EVENT DATE: 20120313
